FAERS Safety Report 7570462-X (Version None)
Quarter: 2011Q2

REPORT INFORMATION
  Report Type: 
  Country: None (occurrence: None)
  Receive Date: 20110622
  Receipt Date: 20110622
  Transmission Date: 20111010
  Serious: Yes (Hospitalization)
  Sender: FDA-Public Use
  Company Number: None

PATIENT
  Age: 32 Year
  Sex: Female

DRUGS (1)
  1. LEVOFLOXACIN [Suspect]
     Indication: BRONCHITIS
     Dates: start: 20110401

REACTIONS (9)
  - SWELLING [None]
  - PRURITUS [None]
  - RESPIRATORY DISTRESS [None]
  - DYSPNOEA [None]
  - COUGH [None]
  - LOSS OF CONSCIOUSNESS [None]
  - HYPOTENSION [None]
  - LIP SWELLING [None]
  - CYANOSIS [None]
